FAERS Safety Report 9068669 (Version 1)
Quarter: 2013Q1

REPORT INFORMATION
  Report Type: Spontaneous
  Country: US (occurrence: US)
  Receive Date: 20130128
  Receipt Date: 20130128
  Transmission Date: 20140127
  Serious: Yes (Other)
  Sender: FDA-Public Use
  Company Number: US-ROXANE LABORATORIES, INC.-2013-RO-00138RO

PATIENT
  Age: 65 Year
  Sex: Male

DRUGS (1)
  1. IRBESARTAN [Suspect]

REACTIONS (2)
  - Tongue abscess [Recovered/Resolved]
  - Angioedema [Recovered/Resolved]
